FAERS Safety Report 7424761-2 (Version None)
Quarter: 2011Q2

REPORT INFORMATION
  Report Type: 
  Country: None (occurrence: None)
  Receive Date: 20110419
  Receipt Date: 20110406
  Transmission Date: 20111010
  Serious: Yes (Hospitalization)
  Sender: FDA-Public Use
  Company Number: GB-BAYER-2011-032178

PATIENT
  Age: 44 Year
  Sex: Male

DRUGS (1)
  1. NAPROXEN SODIUM [Suspect]
     Dosage: 250 MG, TID
     Route: 048

REACTIONS (2)
  - ARTHRALGIA [None]
  - JOINT LOCK [None]
